FAERS Safety Report 8559088-9 (Version None)
Quarter: 2012Q3

REPORT INFORMATION
  Report Type: 
  Country: None (occurrence: None)
  Receive Date: 20120802
  Receipt Date: 20120725
  Transmission Date: 20120928
  Serious: No
  Sender: FDA-Public Use
  Company Number: US-BIOGENIDEC-2012BI027974

PATIENT
  Sex: Female

DRUGS (1)
  1. TYSABRI [Suspect]
     Indication: MULTIPLE SCLEROSIS
     Route: 042
     Dates: start: 20110101

REACTIONS (6)
  - INTRADUCTAL PAPILLOMA OF BREAST [None]
  - BREAST MASS [None]
  - BREAST CYST [None]
  - INFERTILITY [None]
  - CYST [None]
  - ENDOMETRIOSIS [None]
